APPROVED DRUG PRODUCT: ACETAZOLAMIDE
Active Ingredient: ACETAZOLAMIDE
Strength: 125MG
Dosage Form/Route: TABLET;ORAL
Application: A211556 | Product #001 | TE Code: AB
Applicant: HIBROW HEALTHCARE PRIVATE LTD
Approved: Oct 18, 2019 | RLD: No | RS: No | Type: RX